FAERS Safety Report 8582936 (Version 6)
Quarter: 2012Q4

REPORT INFORMATION
  Report Type: 
  Country: US (occurrence: US)
  Receive Date: 20120529
  Receipt Date: 20120926
  Transmission Date: 20130627
  Serious: Yes (Hospitalization)
  Sender: FDA-Public Use
  Company Number: US-JNJFOC-20120515465

PATIENT
  Age: 65 Year
  Sex: Female
  Weight: 44.91 kg

DRUGS (26)
  1. REMICADE [Suspect]
     Indication: CROHN^S DISEASE
     Route: 042
     Dates: start: 20120628
  2. REMICADE [Suspect]
     Indication: CROHN^S DISEASE
     Dosage: infusion at 09:30 hours
     Route: 042
     Dates: start: 20120531
  3. REMICADE [Suspect]
     Indication: CROHN^S DISEASE
     Dosage: 0, 2, 6 and once every 8 weeks; infusion at 13:15 hours
     Route: 042
     Dates: start: 20120509, end: 201205
  4. PREDNISONE [Suspect]
     Indication: CROHN^S DISEASE
     Dosage: taper
     Route: 048
     Dates: start: 20120210, end: 20120510
  5. LEVAQUIN [Concomitant]
     Indication: LUNG ABSCESS
     Route: 065
  6. LEVAQUIN [Concomitant]
     Indication: PNEUMONIA
     Route: 065
  7. FUROSEMIDE [Concomitant]
     Indication: OEDEMA PERIPHERAL
     Route: 065
  8. ETODOLAC [Concomitant]
     Indication: ARTHRITIS
     Route: 065
  9. BETA-BLOCKER, NOS [Concomitant]
     Route: 065
  10. STEROIDS NOS [Concomitant]
     Route: 065
     Dates: start: 201201
  11. VITAMIN B12 [Concomitant]
     Route: 065
  12. LEVOTHYROXINE [Concomitant]
     Indication: THYROID DISORDER
     Route: 065
  13. LOPERAMIDE [Concomitant]
     Indication: DIARRHOEA
     Route: 065
  14. CLOTRIMAZOLE [Concomitant]
     Indication: CANDIDIASIS
     Route: 065
  15. MUPIROCIN [Concomitant]
     Indication: CANDIDIASIS
     Route: 061
  16. ESTRADIOL [Concomitant]
     Dosage: 1/2 tablet a day
     Route: 065
  17. GABAPENTIN [Concomitant]
     Indication: ARTHRITIS
     Route: 065
  18. PRAMIPEXOLE [Concomitant]
     Indication: RESTLESS LEGS SYNDROME
     Route: 065
  19. PANTOPRAZOLE [Concomitant]
     Indication: GASTROOESOPHAGEAL REFLUX DISEASE
     Route: 065
  20. BISOPROLOL FUMARATE [Concomitant]
     Indication: HEART RATE INCREASED
     Dosage: 1/2 tablet once daily
     Route: 065
  21. ONDANSETRON [Concomitant]
     Indication: VOMITING
     Route: 065
  22. ONDANSETRON [Concomitant]
     Indication: NAUSEA
     Route: 065
  23. PROBIOTIC [Concomitant]
     Route: 065
  24. CALCIUM [Concomitant]
  25. VITAMIN D [Concomitant]
     Route: 065
  26. ALL OTHER THERAPEUTICS [Concomitant]
     Route: 065

REACTIONS (11)
  - Neoplasm malignant [Unknown]
  - Anaemia [Recovering/Resolving]
  - Lung abscess [Recovering/Resolving]
  - Pneumonia [Recovering/Resolving]
  - Pleural effusion [Unknown]
  - Dehydration [Recovered/Resolved]
  - Emphysema [Unknown]
  - Weight decreased [Unknown]
  - Gastrooesophageal reflux disease [Unknown]
  - Asthenia [Unknown]
  - Cough [Unknown]
